FAERS Safety Report 23184313 (Version 1)
Quarter: 2023Q4

REPORT INFORMATION
  Report Type: Report from Study
  Country: US (occurrence: US)
  Receive Date: 20231115
  Receipt Date: 20231115
  Transmission Date: 20240109
  Serious: Yes (Hospitalization)
  Sender: FDA-Public Use
  Company Number: US-BoehringerIngelheim-2023-BI-212225

PATIENT
  Age: 47 Year
  Sex: Female

DRUGS (2)
  1. OFEV [Suspect]
     Active Substance: NINTEDANIB
     Indication: Idiopathic pulmonary fibrosis
     Route: 048
     Dates: start: 20221227
  2. AMLODIPINE [Concomitant]
     Active Substance: AMLODIPINE BESYLATE
     Indication: Product used for unknown indication

REACTIONS (14)
  - Pneumonia [Unknown]
  - Epistaxis [Unknown]
  - Diarrhoea [Not Recovered/Not Resolved]
  - Productive cough [Not Recovered/Not Resolved]
  - Weight increased [Unknown]
  - Back pain [Unknown]
  - Gait disturbance [Unknown]
  - Blood cholesterol increased [Unknown]
  - Dry mouth [Unknown]
  - Peripheral sensory neuropathy [Unknown]
  - Flatulence [Unknown]
  - Vasculitis [Unknown]
  - Arteriosclerosis [Unknown]
  - Renal tubular atrophy [Unknown]

NARRATIVE: CASE EVENT DATE: 20221227
